FAERS Safety Report 13488037 (Version 1)
Quarter: 2017Q2

REPORT INFORMATION
  Report Type: Spontaneous
  Country: US (occurrence: US)
  Receive Date: 20170426
  Receipt Date: 20170426
  Transmission Date: 20170830
  Serious: No
  Sender: FDA-Public Use
  Company Number: US-ALKERMES INC.-ALK-2016-000213

PATIENT
  Age: 46 Year
  Sex: Male
  Weight: 120.18 kg

DRUGS (2)
  1. VIVITROL [Suspect]
     Active Substance: NALTREXONE
     Indication: ALCOHOLISM
     Dosage: 380 MG, QMO
     Route: 030
     Dates: start: 20151123
  2. CONTINUOUS POSITIVE AIRWAY PRESSURE [Concomitant]
     Active Substance: DEVICE
     Indication: SLEEP APNOEA SYNDROME
     Dosage: UNK

REACTIONS (7)
  - Injection site reaction [Unknown]
  - Alcohol use [Unknown]
  - Drug effect decreased [Unknown]
  - Injection site pain [Unknown]
  - Decreased appetite [Recovered/Resolved]
  - Nausea [Unknown]
  - Headache [Unknown]

NARRATIVE: CASE EVENT DATE: 2015
